FAERS Safety Report 12170845 (Version 4)
Quarter: 2016Q3

REPORT INFORMATION
  Report Type: Report from Study
  Country: US (occurrence: US)
  Receive Date: 20160311
  Receipt Date: 20160721
  Transmission Date: 20161109
  Serious: Yes (Hospitalization, Other)
  Sender: FDA-Public Use
  Company Number: PHHY2015US152973

PATIENT
  Age: 28 Year
  Sex: Female
  Weight: 74.6 kg

DRUGS (1)
  1. GILENYA [Suspect]
     Active Substance: FINGOLIMOD HYDROCHLORIDE
     Indication: MULTIPLE SCLEROSIS
     Dosage: 0.5 MG, QD
     Route: 048
     Dates: start: 20150809

REACTIONS (6)
  - Multiple sclerosis relapse [Recovered/Resolved]
  - Epistaxis [Recovering/Resolving]
  - Oscillopsia [Recovering/Resolving]
  - Lymphocyte count decreased [Unknown]
  - Vision blurred [Recovering/Resolving]
  - Blindness unilateral [Recovered/Resolved]

NARRATIVE: CASE EVENT DATE: 20151004
